FAERS Safety Report 5742200-4 (Version None)
Quarter: 2008Q2

REPORT INFORMATION
  Report Type: 
  Country: None (occurrence: None)
  Receive Date: 20080513
  Receipt Date: 20080227
  Transmission Date: 20081010
  Serious: No
  Sender: FDA-Public Use
  Company Number: WAES 0802USA06141

PATIENT
  Age: 48 Year
  Sex: Female

DRUGS (2)
  1. ZOLINZA [Suspect]
     Indication: MYCOSIS FUNGOIDES
     Dosage: 300 MG/DAILY/PO; 400 MG/DAILY/PO
     Route: 048
  2. POTASSIUM CHLORIDE [Concomitant]

REACTIONS (3)
  - ALOPECIA [None]
  - BLOOD BILIRUBIN INCREASED [None]
  - DYSGEUSIA [None]
